FAERS Safety Report 14078842 (Version 1)
Quarter: 2017Q4

REPORT INFORMATION
  Report Type: Spontaneous
  Country: US (occurrence: US)
  Receive Date: 20171012
  Receipt Date: 20171012
  Transmission Date: 20180321
  Serious: No
  Sender: FDA-Public Use
  Company Number: US-TEVA-807687ACC

PATIENT
  Sex: Male

DRUGS (1)
  1. AIRDUO RESPICLICK [Suspect]
     Active Substance: FLUTICASONE PROPIONATE\SALMETEROL XINAFOATE
     Dosage: TOOK ONE INHALATION IN THE MORNING
     Dates: start: 20170910, end: 20170910

REACTIONS (8)
  - Chest pain [Recovered/Resolved]
  - Palpitations [Recovered/Resolved]
  - Vision blurred [Recovered/Resolved]
  - Oropharyngeal pain [Recovered/Resolved]
  - Blood pressure increased [Recovered/Resolved]
  - Dizziness [Recovered/Resolved]
  - Adverse drug reaction [Unknown]
  - Headache [Recovered/Resolved]

NARRATIVE: CASE EVENT DATE: 20170910
